FAERS Safety Report 9266544 (Version 4)
Quarter: 2013Q3

REPORT INFORMATION
  Report Type: Spontaneous
  Country: US (occurrence: US)
  Receive Date: 20130502
  Receipt Date: 20130807
  Transmission Date: 20140515
  Serious: No
  Sender: FDA-Public Use
  Company Number: US-BAYER-2013-051330

PATIENT
  Age: 22 Year
  Sex: Female
  Weight: 129 kg

DRUGS (2)
  1. MIRENA [Suspect]
     Indication: CONTRACEPTION
     Dosage: 20 MCG/24HR, CONT
     Route: 015
     Dates: start: 20120521, end: 20130422
  2. MIRENA [Suspect]
     Indication: CONTRACEPTION
     Dosage: 20 MCG/24HR, CONT
     Route: 015
     Dates: start: 20130422

REACTIONS (4)
  - Device expulsion [Recovered/Resolved]
  - Polymenorrhoea [None]
  - Pelvic pain [None]
  - Abdominal pain [None]
